FAERS Safety Report 11334021 (Version 1)
Quarter: 2015Q3

REPORT INFORMATION
  Report Type: Spontaneous
  Country: US (occurrence: US)
  Receive Date: 20150803
  Receipt Date: 20150803
  Transmission Date: 20151125
  Serious: Yes (Other)
  Sender: FDA-Public Use
  Company Number: US-SA-2014SA166505

PATIENT
  Age: 73 Year
  Sex: Female
  Weight: 53.52 kg

DRUGS (4)
  1. HYDROCODONE [Concomitant]
     Active Substance: HYDROCODONE
     Indication: PAIN
     Dosage: DOSE: AS PRESCRIBED
     Route: 065
     Dates: start: 2007
  2. AMBIEN [Suspect]
     Active Substance: ZOLPIDEM TARTRATE
     Indication: SLEEP DISORDER
     Dosage: 10 MG AT NIGHT / 5 MG DAYTIME FOR PAIN RELIEF
     Route: 048
     Dates: start: 20070313
  3. NAPROXEN. [Concomitant]
     Active Substance: NAPROXEN
     Indication: MUSCLE RELAXANT THERAPY
     Dosage: DOSE: AS PRESCRIBED
     Route: 065
     Dates: start: 2007
  4. AMBIEN [Suspect]
     Active Substance: ZOLPIDEM TARTRATE
     Indication: ANALGESIC THERAPY
     Dosage: 10 MG AT NIGHT / 5 MG DAYTIME FOR PAIN RELIEF
     Route: 048
     Dates: start: 20070313

REACTIONS (3)
  - Therapeutic response unexpected [Unknown]
  - Drug dependence [Unknown]
  - Off label use [Unknown]

NARRATIVE: CASE EVENT DATE: 20140109
